FAERS Safety Report 4436568-9 (Version None)
Quarter: 2004Q3

REPORT INFORMATION
  Report Type: 
  Country: None (occurrence: None)
  Receive Date: 20040830
  Receipt Date: 20040625
  Transmission Date: 20050211
  Serious: No
  Sender: FDA-Public Use
  Company Number: US-BRISTOL-MYERS SQUIBB COMPANY-12627576

PATIENT
  Age: 18 Year
  Sex: Male

DRUGS (1)
  1. ABILIFY [Suspect]
     Indication: HALLUCINATION, AUDITORY
     Dosage: 10MG 03-DEC-03; TITRATED UP TO 15MG ON 15-MAR-04.
     Route: 048
     Dates: start: 20031203, end: 20040501

REACTIONS (2)
  - AKATHISIA [None]
  - DEPRESSION [None]
